FAERS Safety Report 21032311 (Version 2)
Quarter: 2022Q3

REPORT INFORMATION
  Report Type: Spontaneous
  Country: US (occurrence: US)
  Receive Date: 20220701
  Receipt Date: 20220701
  Transmission Date: 20221027
  Serious: Yes (Other)
  Sender: FDA-Public Use
  Company Number: US-PFIZER INC-PV202200010795

PATIENT

DRUGS (2)
  1. ESTRING [Suspect]
     Active Substance: ESTRADIOL
     Dosage: 4 MG
  2. DETROL LA [Suspect]
     Active Substance: TOLTERODINE TARTRATE
     Dosage: 4 MG

REACTIONS (5)
  - Breast cancer [Unknown]
  - Bladder prolapse [Unknown]
  - Genital atrophy [Unknown]
  - Suspected counterfeit product [Unknown]
  - Urinary incontinence [Unknown]
